FAERS Safety Report 24838279 (Version 1)
Quarter: 2025Q1

REPORT INFORMATION
  Report Type: Spontaneous
  Country: US (occurrence: US)
  Receive Date: 20250113
  Receipt Date: 20250113
  Transmission Date: 20250409
  Serious: No
  Sender: PFIZER
  Company Number: US-PFIZER INC-202500006394

PATIENT
  Age: 74 Year
  Sex: Female

DRUGS (3)
  1. VYNDAMAX [Interacting]
     Active Substance: TAFAMIDIS
     Dosage: 61 MG, 1X/DAY
     Route: 048
  2. METHOTREXATE [Interacting]
     Active Substance: METHOTREXATE
     Dosage: 20 MG, WEEKLY (4 TABS IN THE MORNING 4 AT NIGHT)
     Route: 048
  3. CLINDAMYCIN HYDROCHLORIDE [Concomitant]
     Active Substance: CLINDAMYCIN HYDROCHLORIDE
     Route: 048

REACTIONS (1)
  - Drug interaction [Unknown]
